FAERS Safety Report 16154494 (Version 4)
Quarter: 2020Q2

REPORT INFORMATION
  Report Type: Report from Study
  Country: US (occurrence: US)
  Receive Date: 20190403
  Receipt Date: 20200526
  Transmission Date: 20200713
  Serious: Yes (Other)
  Sender: FDA-Public Use
  Company Number: US-MALLINCKRODT-T201901939

PATIENT
  Age: 70 Year
  Sex: Male
  Weight: 111 kg

DRUGS (3)
  1. REPOSITORY CORTICOTROPIN INJECTION [Suspect]
     Active Substance: CORTICOTROPIN
     Dosage: 80 UNITS, 2 TIMES A WEEK
     Route: 058
     Dates: start: 2019, end: 201904
  2. WARFARIN [Concomitant]
     Active Substance: WARFARIN
     Indication: PRODUCT USED FOR UNKNOWN INDICATION
     Dosage: UNK
     Route: 065
  3. REPOSITORY CORTICOTROPIN INJECTION [Suspect]
     Active Substance: CORTICOTROPIN
     Indication: NEPHROTIC SYNDROME
     Dosage: 80 UNITS, 2 TIMES A WEEK
     Route: 058
     Dates: start: 20180611, end: 20190130

REACTIONS (10)
  - Epistaxis [Recovering/Resolving]
  - Thrombosis [Not Recovered/Not Resolved]
  - Peripheral swelling [Unknown]
  - Rectal haemorrhage [Recovering/Resolving]
  - Dizziness [Unknown]
  - Renal impairment [Not Recovered/Not Resolved]
  - Feeling abnormal [Unknown]
  - Choking [Not Recovered/Not Resolved]
  - Amnesia [Unknown]
  - Hypoaesthesia [Not Recovered/Not Resolved]

NARRATIVE: CASE EVENT DATE: 2019
